FAERS Safety Report 18777373 (Version 1)
Quarter: 2021Q1

REPORT INFORMATION
  Report Type: Spontaneous
  Country: CA (occurrence: CA)
  Receive Date: 20210122
  Receipt Date: 20210122
  Transmission Date: 20210419
  Serious: Yes (Hospitalization)
  Sender: FDA-Public Use
  Company Number: CA-PFIZER INC-2021040077

PATIENT
  Age: 58 Year
  Sex: Male

DRUGS (1)
  1. PHENYTOIN. [Suspect]
     Active Substance: PHENYTOIN
     Dosage: UNK UNK, 2X/DAY
     Route: 065

REACTIONS (1)
  - Toxicity to various agents [Unknown]
